FAERS Safety Report 6913343-4 (Version None)
Quarter: 2010Q3

REPORT INFORMATION
  Report Type: 
  Country: None (occurrence: None)
  Receive Date: 20100809
  Receipt Date: 20100727
  Transmission Date: 20110219
  Serious: Yes (Hospitalization)
  Sender: FDA-Public Use
  Company Number: PHHY2010US49494

PATIENT
  Sex: Female
  Weight: 38.1 kg

DRUGS (11)
  1. EXJADE [Suspect]
     Indication: IRON METABOLISM DISORDER
     Dosage: 750 MG, DAILY
     Route: 048
     Dates: start: 20100616
  2. ALBUTEROL [Concomitant]
  3. SINGULAIR [Concomitant]
  4. EVISTA [Concomitant]
  5. LASIX [Concomitant]
  6. ADVAIR DISKUS 100/50 [Concomitant]
  7. ZOCOR [Concomitant]
  8. LORAZEPAM [Concomitant]
  9. NEXIUM [Concomitant]
  10. DIOVAN HCT [Concomitant]
  11. NORVASC [Concomitant]

REACTIONS (2)
  - DEHYDRATION [None]
  - OEDEMA PERIPHERAL [None]
